FAERS Safety Report 4286775-3 (Version None)
Quarter: 2004Q1

REPORT INFORMATION
  Report Type: 
  Country: None (occurrence: None)
  Receive Date: 20040206
  Receipt Date: 20031010
  Transmission Date: 20041129
  Serious: Yes (Death, Hospitalization)
  Sender: FDA-Public Use
  Company Number: US-ROCHE-348993

PATIENT
  Age: 71 Year
  Sex: Female
  Weight: 54.9 kg

DRUGS (8)
  1. CAPECITABINE [Suspect]
     Dosage: INTERMITTENT THERAPY OF TWO WEEKS TREATMENT AND ONE WEEK REST.
     Route: 048
     Dates: start: 20030421, end: 20030929
  2. OXALIPLATIN [Suspect]
     Dosage: GIVEN ON DAY ONE OF A THREE WEEK CYCLE.
     Route: 042
     Dates: start: 20030421, end: 20030922
  3. AMBIEN [Concomitant]
     Dates: start: 20030929, end: 20031012
  4. KYTRIL [Concomitant]
     Dates: start: 20030929, end: 20030929
  5. ATENOLOL [Concomitant]
     Dates: start: 20030421, end: 20031012
  6. PROPYLTHIOURACIL [Concomitant]
     Dates: start: 20030509, end: 20031011
  7. IMODIUM [Concomitant]
     Dates: start: 20030714, end: 20031013
  8. TYLENOL (CAPLET) [Concomitant]
     Dates: start: 20030623, end: 20031013

REACTIONS (11)
  - ABDOMINAL PAIN [None]
  - ANURIA [None]
  - ASTHENIA [None]
  - BACTERIA STOOL IDENTIFIED [None]
  - DEHYDRATION [None]
  - DIARRHOEA [None]
  - HYPOTENSION [None]
  - INTESTINAL ISCHAEMIA [None]
  - RENAL FAILURE [None]
  - RESPIRATORY FAILURE [None]
  - SEPTIC SHOCK [None]
